FAERS Safety Report 5580241-0 (Version None)
Quarter: 2007Q4

REPORT INFORMATION
  Report Type: 
  Country: None (occurrence: None)
  Receive Date: 20071231
  Receipt Date: 20071231
  Transmission Date: 20080405
  Serious: Yes (Hospitalization)
  Sender: FDA-Public Use
  Company Number: None

PATIENT
  Age: 19 Year
  Sex: Female
  Weight: 47.6277 kg

DRUGS (6)
  1. PROCHLORPERAZINE [Suspect]
     Indication: NAUSEA
     Dosage: 10MG IV Q8H PRN
     Route: 042
     Dates: start: 20070525, end: 20070526
  2. PROCHLORPERAZINE [Suspect]
     Indication: VOMITING
     Dosage: 10MG IV Q8H PRN
     Route: 042
     Dates: start: 20070525, end: 20070526
  3. VANCOMYCIN [Concomitant]
  4. HYDROMORPHONE HCL [Concomitant]
  5. SERTRALINE [Concomitant]
  6. LORAZEPAM [Concomitant]

REACTIONS (1)
  - DYSTONIA [None]
